FAERS Safety Report 18424482 (Version 1)
Quarter: 2020Q4

REPORT INFORMATION
  Report Type: Other
  Country: CN (occurrence: CN)
  Receive Date: 20201026
  Receipt Date: 20201026
  Transmission Date: 20210114
  Serious: Yes (Other)
  Sender: FDA-Public Use
  Company Number: CN-ROCHE-2698625

PATIENT
  Sex: Female

DRUGS (1)
  1. HERCEPTIN [Suspect]
     Active Substance: TRASTUZUMAB
     Indication: HER2 POSITIVE BREAST CANCER
     Dosage: EACH CYCLE WAS MAINTAINED AT 6 MG/KG
     Route: 041

REACTIONS (2)
  - Myocardial necrosis marker increased [Unknown]
  - Cardiotoxicity [Unknown]
